FAERS Safety Report 12878003 (Version 1)
Quarter: 2016Q4

REPORT INFORMATION
  Report Type: Spontaneous
  Country: SG (occurrence: SG)
  Receive Date: 20161024
  Receipt Date: 20161024
  Transmission Date: 20170207
  Serious: Yes (Other)
  Sender: FDA-Public Use
  Company Number: SG-BAYER-2016-203348

PATIENT
  Age: 55 Year
  Sex: Female

DRUGS (1)
  1. CIPROFLOXACIN. [Suspect]
     Active Substance: CIPROFLOXACIN
     Dosage: UNK

REACTIONS (1)
  - Tongue ulceration [Recovered/Resolved]

NARRATIVE: CASE EVENT DATE: 20160828
